FAERS Safety Report 9459423 (Version 2)
Quarter: 2014Q2

REPORT INFORMATION
  Report Type: Report from Study
  Country: FR (occurrence: FR)
  Receive Date: 20130815
  Receipt Date: 20140401
  Transmission Date: 20141212
  Serious: Yes (Hospitalization)
  Sender: FDA-Public Use
  Company Number: FR-ALEXION PHARMACEUTICALS INC.-A201301833

PATIENT
  Age: 41 Year
  Sex: 0

DRUGS (13)
  1. ECULIZUMAB [Suspect]
     Indication: HAEMOLYTIC URAEMIC SYNDROME
     Dosage: UNK
     Route: 042
  2. PROGRAF [Concomitant]
     Dosage: 3.5 MG, QD IN PM
     Dates: end: 20110614
  3. PROGRAF [Concomitant]
     Dosage: 4 MG, QD IN PM
     Route: 048
  4. ALPRESS LP [Concomitant]
     Dosage: 5 MG, QD
     Route: 048
  5. MONO-TILDIEM [Concomitant]
     Dosage: 300 MG, QD
     Route: 048
  6. FOSRENOL [Concomitant]
     Dosage: 750 MG, TID
     Route: 048
  7. LASILIX [Concomitant]
     Dosage: 500 MG, QD
     Route: 048
  8. NEXIUM [Concomitant]
     Dosage: 20 MG, QD
     Route: 048
  9. RASILEZ [Concomitant]
     Dosage: 300 MG, QD
     Route: 048
  10. MICARDIS [Concomitant]
     Dosage: 40 MG, QD
     Route: 048
  11. VALPROMIDE [Concomitant]
     Dosage: 300 MG, QD
     Route: 048
  12. SECTRAL [Concomitant]
     Dosage: 200 MG, QD
     Route: 048
  13. PREDNISOLONE [Concomitant]
     Dosage: 5 MG, QD
     Route: 048

REACTIONS (1)
  - Transplant rejection [Recovered/Resolved]
